FAERS Safety Report 7883646-8 (Version None)
Quarter: 2011Q4

REPORT INFORMATION
  Report Type: 
  Country: None (occurrence: None)
  Receive Date: 20111102
  Receipt Date: 20111021
  Transmission Date: 20120403
  Serious: Yes (Other)
  Sender: FDA-Public Use
  Company Number: US-BAYER-2011-105353

PATIENT
  Age: 67 Year
  Weight: 46.27 kg

DRUGS (2)
  1. ACETYLSALICYLIC ACID SRT [Suspect]
     Indication: ILL-DEFINED DISORDER
  2. RIVAROXABAN [Interacting]
     Indication: ORTHOPEDIC PROCEDURE
     Dosage: DOSAGE FORM: TABLET
     Route: 048

REACTIONS (1)
  - GASTROINTESTINAL HAEMORRHAGE [None]
